FAERS Safety Report 13552455 (Version 1)
Quarter: 2017Q2

REPORT INFORMATION
  Report Type: Spontaneous
  Country: CH (occurrence: CH)
  Receive Date: 20170517
  Receipt Date: 20170517
  Transmission Date: 20170830
  Serious: Yes (Other)
  Sender: FDA-Public Use
  Company Number: CH-CIPLA LTD.-2017CH08542

PATIENT

DRUGS (8)
  1. TEICOPLANIN [Suspect]
     Active Substance: TEICOPLANIN
     Indication: ANTIBIOTIC THERAPY
     Dosage: UNK
     Route: 065
  2. DIGOXIN. [Interacting]
     Active Substance: DIGOXIN
     Indication: POSITIVE CARDIAC INOTROPIC EFFECT
     Dosage: 3 ?G/KG, PER DAY
     Route: 065
  3. SPIRONOLACTONE. [Suspect]
     Active Substance: SPIRONOLACTONE
     Indication: DIURETIC THERAPY
     Dosage: 1.2 MG/KG, PER DAY
     Route: 048
  4. MILRINONE [Suspect]
     Active Substance: MILRINONE
     Indication: POSITIVE CARDIAC INOTROPIC EFFECT
     Dosage: 0.5 MCG/KG/MIN
     Route: 065
  5. GENTAMICIN. [Suspect]
     Active Substance: GENTAMICIN
     Indication: ANTIBIOTIC THERAPY
     Dosage: UNK
     Route: 065
  6. CARVEDILOL. [Suspect]
     Active Substance: CARVEDILOL
     Indication: SINUS TACHYCARDIA
     Dosage: 0.04 MG/KG/DOSE, BID
     Route: 065
  7. FUROSEMIDE. [Suspect]
     Active Substance: FUROSEMIDE
     Indication: DIURETIC THERAPY
     Dosage: 1.6 TO 2.5 MG/KG/DAY
     Route: 048
  8. CARVEDILOL. [Interacting]
     Active Substance: CARVEDILOL
     Indication: BLOOD PRESSURE INCREASED

REACTIONS (8)
  - Sinus tachycardia [Recovering/Resolving]
  - Blood pressure increased [Unknown]
  - Arrhythmia [Recovered/Resolved]
  - Atrioventricular block [Unknown]
  - Toxicity to various agents [Recovered/Resolved]
  - Creatinine renal clearance decreased [Unknown]
  - Bacillus infection [Unknown]
  - Drug interaction [Unknown]
